FAERS Safety Report 9515775 (Version 1)
Quarter: 2013Q3

REPORT INFORMATION
  Report Type: Spontaneous
  Country: US (occurrence: US)
  Receive Date: 20130911
  Receipt Date: 20130911
  Transmission Date: 20140515
  Serious: Yes (Death, Hospitalization)
  Sender: FDA-Public Use
  Company Number: US-B.I. PHARMACEUTICALS,INC./RIDGEFIELD-2013-BI-28111BP

PATIENT
  Age: 89 Year
  Sex: Male

DRUGS (7)
  1. PRADAXA [Suspect]
     Indication: CEREBROVASCULAR ACCIDENT PROPHYLAXIS
     Dosage: 300 MG
     Route: 048
     Dates: start: 2011
  2. PRADAXA [Suspect]
     Indication: ATRIAL FIBRILLATION
  3. CARBAMAZEPINE [Concomitant]
     Indication: CONVULSION
  4. FELODIPINE [Concomitant]
     Indication: HYPERTENSION
  5. DONEPEZIL [Concomitant]
     Indication: AMNESIA
  6. LORATADINE [Concomitant]
  7. BUMEX [Concomitant]

REACTIONS (4)
  - Cardiac failure [Fatal]
  - Gastrointestinal haemorrhage [Fatal]
  - Hip fracture [Unknown]
  - Fall [Recovered/Resolved]
